FAERS Safety Report 6318599-7 (Version None)
Quarter: 2009Q3

REPORT INFORMATION
  Report Type: 
  Country: None (occurrence: None)
  Receive Date: 20090821
  Receipt Date: 20090810
  Transmission Date: 20100115
  Serious: Yes (Other)
  Sender: FDA-Public Use
  Company Number: US-ELI_LILLY_AND_COMPANY-US200908002228

PATIENT
  Age: 50 Year
  Sex: Male

DRUGS (19)
  1. CYMBALTA [Suspect]
     Indication: DEPRESSION
     Dosage: 60 MG, DAILY (1/D)
  2. REQUIP [Concomitant]
     Dosage: 8 MG, UNK
  3. REQUIP [Concomitant]
     Dosage: 16 MG, 2/D
  4. REQUIP [Concomitant]
     Dosage: 4 MG, UNK
     Dates: start: 20090412, end: 20090512
  5. REQUIP [Concomitant]
     Dosage: 6 MG, DAILY (1/D)
     Dates: start: 20090513, end: 20090607
  6. REQUIP [Concomitant]
     Dosage: 8 MG, DAILY (1/D)
     Dates: start: 20090608, end: 20090709
  7. REQUIP [Concomitant]
     Dosage: 10 MG, DAILY (1/D)
     Dates: start: 20090710, end: 20090721
  8. REQUIP [Concomitant]
     Dosage: 12 MG, DAILY (1/D)
     Dates: start: 20090724
  9. SINEMET [Concomitant]
  10. AZILECT [Concomitant]
     Indication: MOTOR DYSFUNCTION
     Dosage: 0.5 MG, DAILY (1/D)
  11. KLONOPIN [Concomitant]
     Indication: INITIAL INSOMNIA
     Dosage: 0.5 MG, DAILY (1/D)
  12. AMANTADINE HCL [Concomitant]
     Indication: DYSKINESIA
     Dosage: 100 MG, 2/D
  13. SINEMET CR [Concomitant]
  14. BENZHEXOL [Concomitant]
     Indication: MUSCLE RIGIDITY
     Dosage: 2 MG, 4/D
  15. CENTRUM [Concomitant]
     Indication: ROUTINE HEALTH MAINTENANCE
  16. VITAMIN D [Concomitant]
     Dosage: 1000 IU, DAILY (1/D)
  17. LINSEED [Concomitant]
     Dosage: 15 ML, DAILY (1/D)
  18. UBIDECARENONE [Concomitant]
     Dosage: 200 MG, DAILY (1/D)
  19. CO-CARELDOPA [Concomitant]
     Indication: GAIT DISTURBANCE

REACTIONS (15)
  - BALANCE DISORDER [None]
  - CONTUSION [None]
  - DRUG INTERACTION [None]
  - DYSGRAPHIA [None]
  - DYSKINESIA [None]
  - FALL [None]
  - FATIGUE [None]
  - HEMIPARESIS [None]
  - INSOMNIA [None]
  - JOINT INJURY [None]
  - MUSCULAR WEAKNESS [None]
  - PARALYSIS FLACCID [None]
  - SOMNOLENCE [None]
  - THERAPEUTIC RESPONSE DELAYED [None]
  - TREMOR [None]
